FAERS Safety Report 4971876-4 (Version None)
Quarter: 2006Q2

REPORT INFORMATION
  Report Type: 
  Country: None (occurrence: None)
  Receive Date: 20060412
  Receipt Date: 20060412
  Transmission Date: 20061013
  Serious: Yes (Hospitalization)
  Sender: FDA-Public Use
  Company Number: None

PATIENT
  Age: 76 Year
  Sex: Male
  Weight: 128.368 kg

DRUGS (9)
  1. AVASTIN [Suspect]
     Indication: HEPATIC NEOPLASM MALIGNANT
     Dosage: 10MG/KG IV
     Route: 042
     Dates: start: 20041101, end: 20060327
  2. GEMCITABINE / OXALIPLATIN [Suspect]
     Indication: HEPATIC NEOPLASM MALIGNANT
     Dosage: 131.6 MG/M2    /   5.6 MG/M2
     Dates: start: 20041116, end: 20060328
  3. COUMADIN [Concomitant]
  4. FUROSEMIDE [Concomitant]
  5. NORVASC [Concomitant]
  6. SPIRONOLACTONE [Concomitant]
  7. FLOMAX [Concomitant]
  8. COLACE [Concomitant]
  9. ALEVE [Concomitant]

REACTIONS (8)
  - AMMONIA INCREASED [None]
  - BLOOD ALBUMIN DECREASED [None]
  - BLOOD SODIUM DECREASED [None]
  - BLOOD THYROID STIMULATING HORMONE DECREASED [None]
  - BLOOD UREA INCREASED [None]
  - DISEASE PROGRESSION [None]
  - HEPATIC ENCEPHALOPATHY [None]
  - MENTAL STATUS CHANGES [None]
